FAERS Safety Report 23626014 (Version 1)
Quarter: 2024Q1

REPORT INFORMATION
  Report Type: Spontaneous
  Country: PL (occurrence: PL)
  Receive Date: 20240313
  Receipt Date: 20240313
  Transmission Date: 20240410
  Serious: Yes (Hospitalization, Other)
  Sender: FDA-Public Use
  Company Number: PL-SUN PHARMACEUTICAL INDUSTRIES LTD-2024R1-435639

PATIENT
  Age: 78 Year
  Sex: Male

DRUGS (3)
  1. METHIMAZOLE [Suspect]
     Active Substance: METHIMAZOLE
     Indication: Hyperthyroidism
     Dosage: 120 MILLIGRAM, QD
     Route: 065
  2. PREDNISONE [Suspect]
     Active Substance: PREDNISONE
     Indication: Hyperthyroidism
     Dosage: 60 MILLIGRAM, QD
     Route: 065
  3. LITHIUM CARBONATE [Suspect]
     Active Substance: LITHIUM CARBONATE
     Indication: Hyperthyroidism
     Dosage: 250 MILLIGRAM, BID
     Route: 065

REACTIONS (2)
  - Therapeutic product effect incomplete [Unknown]
  - Anaemia [Recovered/Resolved]
